FAERS Safety Report 10586732 (Version 1)
Quarter: 2014Q4

REPORT INFORMATION
  Report Type: Spontaneous
  Country: US (occurrence: None)
  Receive Date: 20141114
  Receipt Date: 20141114
  Transmission Date: 20150529
  Serious: No
  Sender: FDA-Public Use
  Company Number: None

PATIENT
  Age: 53 Year
  Sex: Female

DRUGS (1)
  1. CAPECITABINE 500MG TABS [Suspect]
     Active Substance: CAPECITABINE
     Dosage: 4 TABS, BID, ORAL
     Route: 048

REACTIONS (3)
  - Rhinorrhoea [None]
  - Productive cough [None]
  - Lacrimation increased [None]

NARRATIVE: CASE EVENT DATE: 20141022
